FAERS Safety Report 8067747-X (Version None)
Quarter: 2012Q1

REPORT INFORMATION
  Report Type: 
  Country: None (occurrence: None)
  Receive Date: 20120124
  Receipt Date: 20120111
  Transmission Date: 20120608
  Serious: Yes (Death)
  Sender: FDA-Public Use
  Company Number: TR-MEDIMMUNE-MEDI-0014447

PATIENT
  Sex: Male
  Weight: 5 kg

DRUGS (1)
  1. SYNAGIS [Suspect]
     Route: 030
     Dates: start: 20111110, end: 20111215

REACTIONS (1)
  - DEATH [None]
